FAERS Safety Report 10503925 (Version 1)
Quarter: 2014Q4

REPORT INFORMATION
  Report Type: Spontaneous
  Country: US (occurrence: None)
  Receive Date: 20141006
  Receipt Date: 20141006
  Transmission Date: 20150528
  Serious: Yes (Other)
  Sender: FDA-Public Use
  Company Number: CI014066858

PATIENT
  Sex: Male

DRUGS (1)
  1. CREST PRO-HEALTH (STANNOUS FLUORIDE) [Suspect]
     Active Substance: STANNOUS FLUORIDE
     Dosage: FOR THE LAST 3-4 YRS AS RECOMMENDED BYDENTIST, INTRAORAL
     Dates: start: 2010

REACTIONS (5)
  - Bone loss [None]
  - Tooth loss [None]
  - Sensitivity of teeth [None]
  - Loose tooth [None]
  - Tooth fracture [None]

NARRATIVE: CASE EVENT DATE: 2012
